FAERS Safety Report 5939110-6 (Version None)
Quarter: 2008Q4

REPORT INFORMATION
  Report Type: 
  Country: None (occurrence: None)
  Receive Date: 20081103
  Receipt Date: 20081027
  Transmission Date: 20090506
  Serious: Yes (Life-Threatening)
  Sender: FDA-Public Use
  Company Number: B0543641A

PATIENT
  Age: 70 Year
  Sex: Male
  Weight: 77 kg

DRUGS (4)
  1. BUPROPION HCL [Suspect]
     Indication: SMOKING CESSATION THERAPY
     Dosage: 150MG PER DAY
     Route: 048
     Dates: start: 20080707, end: 20080912
  2. MALARONE [Concomitant]
     Indication: MALARIA PROPHYLAXIS
     Route: 048
     Dates: start: 20080618, end: 20080712
  3. REVAXIS [Concomitant]
     Route: 030
     Dates: start: 20080529, end: 20080529
  4. HEPATYRIX [Concomitant]
     Route: 030
     Dates: start: 20080606, end: 20080606

REACTIONS (1)
  - ATRIAL FIBRILLATION [None]
